FAERS Safety Report 4997737-2 (Version None)
Quarter: 2006Q2

REPORT INFORMATION
  Report Type: 
  Country: None (occurrence: None)
  Receive Date: 20060510
  Receipt Date: 20060428
  Transmission Date: 20061013
  Serious: Yes (Death, Hospitalization)
  Sender: FDA-Public Use
  Company Number: US-JNJFOC-20050104488

PATIENT
  Sex: Male
  Weight: 52.16 kg

DRUGS (51)
  1. REMICADE [Suspect]
     Route: 042
     Dates: start: 20040927, end: 20041111
  2. REMICADE [Suspect]
     Route: 042
     Dates: start: 20040927, end: 20041111
  3. REMICADE [Suspect]
     Indication: CROHN'S DISEASE
     Route: 042
     Dates: start: 20040927, end: 20041111
  4. H-C TUSSIVE [Concomitant]
  5. PENTASA [Concomitant]
     Indication: CROHN'S DISEASE
  6. IMURAN [Concomitant]
     Route: 048
  7. IMURAN [Concomitant]
     Route: 048
  8. PERCOCET [Concomitant]
  9. PERCOCET [Concomitant]
     Indication: PAIN
     Dosage: EVERY 6 HOURS
  10. PREVACID [Concomitant]
     Route: 048
  11. MULTI-VITAMIN [Concomitant]
  12. MULTI-VITAMIN [Concomitant]
  13. MULTI-VITAMIN [Concomitant]
  14. MULTI-VITAMIN [Concomitant]
  15. MULTI-VITAMIN [Concomitant]
  16. MULTI-VITAMIN [Concomitant]
  17. MULTI-VITAMIN [Concomitant]
  18. MULTI-VITAMIN [Concomitant]
  19. PREDNISONE TAB [Concomitant]
  20. CIPRO [Concomitant]
  21. CIPRO [Concomitant]
     Dosage: PRESCRIBED FOR TWO WEEKS
  22. CIPRO [Concomitant]
     Dosage: IVPB
  23. CIPRO [Concomitant]
     Dosage: IVPB (INTRAVENOUS PIGGYBACK)
  24. FLAGYL [Concomitant]
     Dosage: PRESCRIBED FOR TWO WEEKS
  25. FLAGYL [Concomitant]
     Dosage: PRESCRIBED FOR TWO WEEKS
  26. FLAGYL [Concomitant]
     Dosage: ORAL
  27. FLAGYL [Concomitant]
     Dosage: IVPB
  28. FLAGYL [Concomitant]
     Dosage: IVPB (INTRAVENOUS PIGGBACK)
  29. FLAGYL [Concomitant]
     Dosage: IVPB (INTRAVENOUS PIGGBACK)
  30. DIAZEPAM [Concomitant]
     Route: 048
  31. ONDANSETRON HCL [Concomitant]
     Indication: VOMITING
     Dosage: IVP ( INTRAVENOUS PUSH)
     Route: 042
  32. PHENERGAN HCL [Concomitant]
     Dosage: ORALLY
     Route: 030
  33. PHENERGAN HCL [Concomitant]
     Route: 030
  34. HYDROCODONE [Concomitant]
  35. BETAMETHASONE [Concomitant]
     Dosage: 0.05 PERCENT CREAM
  36. HYDROCORTISONE [Concomitant]
     Dosage: 2.5 PERCENT CREAM
  37. ASACOL [Concomitant]
  38. ORPHENADRINE CITRATE [Concomitant]
  39. ROXICET [Concomitant]
  40. ROXICET [Concomitant]
  41. OXYCODONE [Concomitant]
  42. VALTREX [Concomitant]
  43. ALPRAZOLAM [Concomitant]
  44. ALPRAZOLAM [Concomitant]
  45. DOXYCYCLINE [Concomitant]
     Dosage: FOR TEN DAYS
  46. TRIAMCINOLONE [Concomitant]
  47. CEFACLOR [Concomitant]
     Dosage: FOR TEN DAYS
  48. MECLIZINE [Concomitant]
  49. ACETAMINOPHEN [Concomitant]
  50. KETOROLAC TROMETHAMINE [Concomitant]
  51. ALBUTEROL SULFATE AUTOHALER [Concomitant]

REACTIONS (13)
  - ACINETOBACTER INFECTION [None]
  - ACUTE RESPIRATORY DISTRESS SYNDROME [None]
  - CHEST PAIN [None]
  - DISSEMINATED TUBERCULOSIS [None]
  - FATIGUE [None]
  - LYMPHOHISTIOCYTOSIS [None]
  - MYALGIA [None]
  - NAUSEA [None]
  - PANCYTOPENIA [None]
  - RESPIRATORY FAILURE [None]
  - SEPSIS [None]
  - STENOTROPHOMONAS INFECTION [None]
  - VIRAL INFECTION [None]
